FAERS Safety Report 8243391-6 (Version None)
Quarter: 2012Q1

REPORT INFORMATION
  Report Type: 
  Country: None (occurrence: None)
  Receive Date: 20120329
  Receipt Date: 20120322
  Transmission Date: 20120608
  Serious: No
  Sender: FDA-Public Use
  Company Number: US-PFIZER INC-2012074982

PATIENT
  Sex: Female

DRUGS (11)
  1. CELEBREX [Suspect]
     Dosage: UNK
  2. AZITHROMYCIN [Suspect]
     Dosage: UNK
  3. VIOXX [Suspect]
     Dosage: UNK
  4. IMITREX [Suspect]
     Indication: MIGRAINE
     Dosage: UNK
  5. CALAN [Suspect]
     Dosage: UNK
  6. FOSAMAX [Suspect]
     Dosage: UNK
  7. MOBIC [Suspect]
     Dosage: UNK
  8. CYMBALTA [Suspect]
     Dosage: UNK
  9. DOXYCYCLINE MONOHYDRATE [Suspect]
     Dosage: UNK
  10. GABAPENTIN [Suspect]
     Indication: NEURALGIA
     Dosage: 800 MG, 3X/DAY
  11. RELPAX [Suspect]
     Indication: MIGRAINE
     Dosage: UNK

REACTIONS (6)
  - OEDEMA PERIPHERAL [None]
  - MYALGIA [None]
  - MIGRAINE [None]
  - HYPERSENSITIVITY [None]
  - SWELLING FACE [None]
  - NEURALGIA [None]
